FAERS Safety Report 10413855 (Version 1)
Quarter: 2014Q3

REPORT INFORMATION
  Report Type: Spontaneous
  Country: US (occurrence: US)
  Receive Date: 20140827
  Receipt Date: 20140827
  Transmission Date: 20150326
  Serious: Yes (Other)
  Sender: FDA-Public Use
  Company Number: US-PFIZER INC-2014234501

PATIENT
  Age: 71 Year
  Sex: Male
  Weight: 90.2 kg

DRUGS (1)
  1. LIPITOR [Suspect]
     Active Substance: ATORVASTATIN CALCIUM
     Indication: PROPHYLAXIS
     Dosage: 40 MG, DAILY
     Dates: start: 20140515

REACTIONS (2)
  - Insomnia [Not Recovered/Not Resolved]
  - Cardiac valve disease [Unknown]
